FAERS Safety Report 9631298 (Version 1)
Quarter: 2013Q4

REPORT INFORMATION
  Report Type: Spontaneous
  Country: US (occurrence: US)
  Receive Date: 20131018
  Receipt Date: 20131018
  Transmission Date: 20140711
  Serious: Yes (Hospitalization)
  Sender: FDA-Public Use
  Company Number: US-JNJFOC-20131006960

PATIENT
  Sex: Female

DRUGS (2)
  1. XARELTO [Suspect]
     Indication: CEREBROVASCULAR ACCIDENT PROPHYLAXIS
     Dosage: STRENGTH: 20 MG
     Route: 048
     Dates: start: 2013, end: 2013
  2. XARELTO [Suspect]
     Indication: ATRIAL FIBRILLATION
     Dosage: STRENGTH: 20 MG
     Route: 048
     Dates: start: 2013, end: 2013

REACTIONS (2)
  - Atrial fibrillation [Unknown]
  - Cerebrovascular accident [Recovering/Resolving]
